FAERS Safety Report 24287048 (Version 1)
Quarter: 2024Q3

REPORT INFORMATION
  Report Type: Spontaneous
  Country: US (occurrence: None)
  Receive Date: 20240903
  Receipt Date: 20240903
  Transmission Date: 20241017
  Serious: No
  Sender: Public
  Company Number: None

PATIENT
  Sex: Male

DRUGS (2)
  1. SPRAVATO [Suspect]
     Active Substance: ESKETAMINE
     Indication: Major depression
     Dosage: ADMINISTER 56MG INTRANASALLY TWICE WEEKLY USING 2 DEVICES
     Dates: start: 202408
  2. VIVITROL SINGLE DOSE KIT [Concomitant]

REACTIONS (2)
  - Depression [None]
  - Suicidal ideation [None]
